FAERS Safety Report 16025583 (Version 1)
Quarter: 2019Q1

REPORT INFORMATION
  Report Type: Spontaneous
  Country: FR (occurrence: FR)
  Receive Date: 20190302
  Receipt Date: 20190302
  Transmission Date: 20190418
  Serious: Yes (Life-Threatening, Hospitalization, Other)
  Sender: FDA-Public Use
  Company Number: FR-AUROBINDO-AUR-APL-2019-009691

PATIENT

DRUGS (4)
  1. ROXITHROMYCIN [Concomitant]
     Active Substance: ROXITHROMYCIN
     Indication: BRONCHITIS
     Dosage: UNK
     Route: 065
     Dates: start: 20161229
  2. AMOXICILLINE/ACIDE CLAVULANIQUE BIOGARAN [Suspect]
     Active Substance: AMOXICILLIN\CLAVULANIC ACID
     Indication: BRONCHITIS
     Dosage: 1 GRAM, ONCE A DAY
     Route: 048
     Dates: start: 20161202
  3. ACETYLCYSTEINE. [Suspect]
     Active Substance: ACETYLCYSTEINE
     Indication: BRONCHITIS
     Dosage: UNK
     Route: 048
     Dates: start: 20161229
  4. AUGMENTIN [Suspect]
     Active Substance: AMOXICILLIN\CLAVULANATE POTASSIUM
     Indication: PRODUCT USED FOR UNKNOWN INDICATION
     Dosage: UNK
     Route: 048
     Dates: start: 20161210, end: 20170103

REACTIONS (3)
  - Anaphylactic shock [Recovered/Resolved]
  - Gastrointestinal toxicity [Recovered/Resolved]
  - Acute coronary syndrome [Not Recovered/Not Resolved]

NARRATIVE: CASE EVENT DATE: 201701
